FAERS Safety Report 10252225 (Version 1)
Quarter: 2014Q2

REPORT INFORMATION
  Report Type: Spontaneous
  Country: US (occurrence: US)
  Receive Date: 20140623
  Receipt Date: 20140623
  Transmission Date: 20141212
  Serious: Yes (Other)
  Sender: FDA-Public Use
  Company Number: US-JNJFOC-20140609037

PATIENT
  Age: 62 Year
  Sex: Male

DRUGS (14)
  1. TRAMADOL HYDROCHLORIDE [Suspect]
     Indication: PAIN
     Dosage: 50MG 4 TIMES 1 DAY
     Route: 048
  2. BUPROPION HYDROCHLORIDE [Interacting]
     Indication: PRODUCT USED FOR UNKNOWN INDICATION
     Route: 048
  3. TRAZODONE [Interacting]
     Indication: INSOMNIA
     Route: 048
  4. OXYCODONE [Interacting]
     Indication: PAIN
     Route: 048
  5. VIGRAN [Concomitant]
     Route: 048
  6. LORAZEPAM [Concomitant]
     Indication: WITHDRAWAL SYNDROME
     Route: 048
  7. HEPARIN [Concomitant]
     Route: 030
  8. RANITIDINE [Concomitant]
     Route: 048
  9. DOCUSATE [Concomitant]
     Indication: CONSTIPATION
     Route: 048
  10. PARACETAMOL [Concomitant]
     Indication: PAIN
     Route: 048
  11. MACROGOL [Concomitant]
     Indication: CONSTIPATION
     Route: 048
  12. LEKOVIT CA [Concomitant]
     Route: 048
  13. FOLIC ACID [Concomitant]
     Route: 048
  14. THIAMINE [Concomitant]
     Route: 048

REACTIONS (27)
  - Serotonin syndrome [Recovered/Resolved]
  - Drug interaction [Unknown]
  - Disorientation [Recovered/Resolved]
  - Consciousness fluctuating [Recovered/Resolved]
  - Abasia [Recovered/Resolved]
  - Tachypnoea [Recovered/Resolved]
  - Myoclonus [Recovered/Resolved]
  - Hyponatraemia [Recovered/Resolved]
  - Blood creatine phosphokinase increased [Recovered/Resolved]
  - Blood urea increased [Recovered/Resolved]
  - Heart rate increased [Recovered/Resolved]
  - Confusional state [Recovered/Resolved]
  - Anxiety [Recovered/Resolved]
  - Restlessness [Recovered/Resolved]
  - Urinary incontinence [Recovered/Resolved]
  - Diarrhoea [Recovered/Resolved]
  - Pyrexia [Recovered/Resolved]
  - Hallucination, visual [Recovered/Resolved]
  - Hypertension [Recovered/Resolved]
  - Tremor [Recovered/Resolved]
  - Disturbance in attention [Recovered/Resolved]
  - Muscle rigidity [Recovered/Resolved]
  - Hyperhidrosis [Recovered/Resolved]
  - Dysarthria [Recovered/Resolved]
  - Irritability [Recovered/Resolved]
  - Leukocytosis [Recovered/Resolved]
  - Mydriasis [Recovered/Resolved]
